FAERS Safety Report 16209404 (Version 7)
Quarter: 2019Q4

REPORT INFORMATION
  Report Type: Report from Study
  Country: US (occurrence: US)
  Receive Date: 20190417
  Receipt Date: 20191120
  Transmission Date: 20200122
  Serious: Yes (Hospitalization)
  Sender: FDA-Public Use
  Company Number: US-ACTELION-A-NJ2019-189106

PATIENT
  Age: 47 Year
  Sex: Female
  Weight: 109.3 kg

DRUGS (27)
  1. ATORVASTATIN [Concomitant]
     Active Substance: ATORVASTATIN
     Dosage: 20 MG
     Dates: start: 20190827
  2. OXYCODONE [Concomitant]
     Active Substance: OXYCODONE
  3. AMLODIPINE [Concomitant]
     Active Substance: AMLODIPINE BESYLATE
  4. OMEPRAZOLE. [Concomitant]
     Active Substance: OMEPRAZOLE
  5. METOLAZONE. [Concomitant]
     Active Substance: METOLAZONE
  6. CYCLOBENZAPRINE. [Concomitant]
     Active Substance: CYCLOBENZAPRINE
  7. ALENDRONATE [Concomitant]
     Active Substance: ALENDRONATE SODIUM
     Dosage: 70 MG
     Dates: start: 20190827
  8. LYRICA [Concomitant]
     Active Substance: PREGABALIN
     Dosage: 100 MG
     Dates: start: 20190814
  9. MORPHINE [Concomitant]
     Active Substance: MORPHINE
     Dosage: 15 MG
     Dates: start: 20190824
  10. POTASSIUM CHLORIDE. [Concomitant]
     Active Substance: POTASSIUM CHLORIDE
  11. PERCOCET [Concomitant]
     Active Substance: ACETAMINOPHEN\OXYCODONE HYDROCHLORIDE
     Dosage: 10/325
     Dates: start: 20190827
  12. ADEMPAS [Concomitant]
     Active Substance: RIOCIGUAT
  13. SILDENAFIL. [Concomitant]
     Active Substance: SILDENAFIL
  14. ZOLPIDEM [Concomitant]
     Active Substance: ZOLPIDEM TARTRATE
     Dosage: 10 MG
     Dates: start: 20190819
  15. DIGOX [Concomitant]
     Active Substance: DIGOXIN
  16. REMODULIN [Concomitant]
     Active Substance: TREPROSTINIL
  17. HYDROCHLOROTH [Concomitant]
     Active Substance: HYDROCHLOROTHIAZIDE
  18. TRAMADOL. [Concomitant]
     Active Substance: TRAMADOL
  19. TORSEMIDE. [Concomitant]
     Active Substance: TORSEMIDE
     Dosage: 100 MG
     Dates: start: 20190906
  20. ESCITALOPRAM [Concomitant]
     Active Substance: ESCITALOPRAM OXALATE
  21. MIDODRINE [Concomitant]
     Active Substance: MIDODRINE
     Dosage: 5 MG
     Dates: start: 20190814
  22. OXYCODONE WITH APAP [Concomitant]
     Active Substance: ACETAMINOPHEN\OXYCODONE HYDROCHLORIDE
  23. FERRO SULFAT [Concomitant]
  24. PANTOPRAZOLE [Concomitant]
     Active Substance: PANTOPRAZOLE
     Dosage: 40 MG
     Dates: start: 20190818
  25. EPLERENONE. [Concomitant]
     Active Substance: EPLERENONE
     Dosage: 50 MG
     Dates: start: 20190906
  26. OPSUMIT [Suspect]
     Active Substance: MACITENTAN
     Indication: PULMONARY ARTERIAL HYPERTENSION
     Dosage: 10 MG, QD
     Route: 048
     Dates: start: 20190109
  27. FERROUS SULFATE. [Concomitant]
     Active Substance: FERROUS SULFATE

REACTIONS (7)
  - Fluid overload [Not Recovered/Not Resolved]
  - Unevaluable event [Unknown]
  - Pulmonary arterial hypertension [Unknown]
  - Mental status changes [Not Recovered/Not Resolved]
  - Device leakage [Unknown]
  - Cardiac failure [Not Recovered/Not Resolved]
  - Blood electrolytes decreased [Recovering/Resolving]

NARRATIVE: CASE EVENT DATE: 201909
